FAERS Safety Report 17639609 (Version 3)
Quarter: 2020Q2

REPORT INFORMATION
  Report Type: Spontaneous
  Country: US (occurrence: US)
  Receive Date: 20200407
  Receipt Date: 20200617
  Transmission Date: 20200713
  Serious: Yes (Other)
  Sender: FDA-Public Use
  Company Number: US-PFIZER INC-2020142167

PATIENT
  Age: 34 Year
  Sex: Female

DRUGS (1)
  1. XELJANZ [Suspect]
     Active Substance: TOFACITINIB CITRATE
     Dosage: 5 MG, UNK
     Dates: start: 202003

REACTIONS (6)
  - Drug hypersensitivity [Unknown]
  - Nausea [Unknown]
  - Cough [Unknown]
  - Nephrolithiasis [Unknown]
  - Influenza like illness [Unknown]
  - Headache [Unknown]
